FAERS Safety Report 25984684 (Version 1)
Quarter: 2025Q4

REPORT INFORMATION
  Report Type: Spontaneous
  Country: EU (occurrence: EU)
  Receive Date: 20251031
  Receipt Date: 20251031
  Transmission Date: 20260117
  Serious: Yes (Life-Threatening, Hospitalization)
  Sender: ROCHE
  Company Number: None

PATIENT
  Age: 64 Year
  Sex: Male
  Weight: 55 kg

DRUGS (12)
  1. VALGANCICLOVIR [Suspect]
     Active Substance: VALGANCICLOVIR
     Indication: Cytomegalovirus infection
     Route: 065
  2. MYFORTIC [Interacting]
     Active Substance: MYCOPHENOLATE SODIUM
     Indication: Renal transplant
     Dosage: 50 TABLETS
     Route: 048
     Dates: start: 202412, end: 20250131
  3. MYFORTIC [Interacting]
     Active Substance: MYCOPHENOLATE SODIUM
     Indication: Immunosuppressant drug therapy
     Route: 048
  4. MYFORTIC [Interacting]
     Active Substance: MYCOPHENOLATE SODIUM
     Route: 048
  5. MYFORTIC [Interacting]
     Active Substance: MYCOPHENOLATE SODIUM
     Dosage: REDUCED
     Route: 048
     Dates: start: 20250112, end: 20250123
  6. MYFORTIC [Interacting]
     Active Substance: MYCOPHENOLATE SODIUM
     Dosage: REDUCED
     Route: 048
     Dates: start: 20250221
  7. CIMZIA [Interacting]
     Active Substance: CERTOLIZUMAB PEGOL
     Indication: Ankylosing spondylitis
     Dosage: 2 PREFILLED SYRINGES OF 1 ML
     Route: 058
     Dates: start: 2025
  8. PREDNISONE [Interacting]
     Active Substance: PREDNISONE
     Indication: Renal transplant
     Route: 048
     Dates: start: 202412, end: 20250131
  9. PREDNISONE [Interacting]
     Active Substance: PREDNISONE
     Indication: Immunosuppressant drug therapy
     Route: 048
     Dates: start: 20250221
  10. PREDNISONE [Interacting]
     Active Substance: PREDNISONE
     Dosage: IMMUNOSUPPRESSIVE TREATMENT WAS RESTARTED ON 3/2/2025.
     Route: 048
     Dates: start: 20250203
  11. ENVARSUS XR [Interacting]
     Active Substance: TACROLIMUS
     Indication: Renal transplant
     Dosage: 30 TABLETS
     Route: 048
     Dates: start: 202412, end: 20250131
  12. ENVARSUS XR [Interacting]
     Active Substance: TACROLIMUS
     Indication: Immunosuppressant drug therapy

REACTIONS (7)
  - Klebsiella sepsis [Recovered/Resolved]
  - Septic shock [Recovered/Resolved]
  - Pyelonephritis acute [Unknown]
  - Renal impairment [Unknown]
  - Klebsiella infection [Unknown]
  - Escherichia infection [Unknown]
  - Off label use [Unknown]

NARRATIVE: CASE EVENT DATE: 20250101
